FAERS Safety Report 4761220-X (Version None)
Quarter: 2005Q3

REPORT INFORMATION
  Report Type: 
  Country: None (occurrence: None)
  Receive Date: 20050830
  Receipt Date: 20050708
  Transmission Date: 20060218
  Serious: No
  Sender: FDA-Public Use
  Company Number: FABR-11162

PATIENT
  Age: 38 Year
  Sex: Male
  Weight: 58.9676 kg

DRUGS (12)
  1. FABRAZYME [Suspect]
     Indication: FABRY'S DISEASE
     Dosage: 70 MG Q2WKS IV
     Route: 042
     Dates: start: 20030527
  2. TYLENOL [Concomitant]
  3. BENADRYL [Concomitant]
  4. ASPIRIN [Concomitant]
  5. SOMA [Concomitant]
  6. LORTAB [Concomitant]
  7. NEURONTIN [Concomitant]
  8. PREDNISONE TAB [Concomitant]
  9. SEREVENT [Concomitant]
  10. SINGULAIR [Concomitant]
  11. CALCIUM/VITAMIN D [Concomitant]
  12. MAGNESIUM OXIDE [Concomitant]

REACTIONS (3)
  - ARTHRALGIA [None]
  - BODY TEMPERATURE INCREASED [None]
  - CHILLS [None]
